FAERS Safety Report 8775561 (Version 2)
Quarter: 2012Q4

REPORT INFORMATION
  Report Type: Report from Study
  Country: US (occurrence: US)
  Receive Date: 20120909
  Receipt Date: 20120924
  Transmission Date: 20130627
  Serious: Yes (Other)
  Sender: FDA-Public Use
  Company Number: US-ABBOTT-12P-163-0974953-00

PATIENT
  Age: 74 Year
  Sex: Female

DRUGS (4)
  1. HUMIRA [Suspect]
     Indication: PSORIATIC ARTHROPATHY
     Dates: start: 20080923
  2. UNKNOWN MEDICATION [Concomitant]
     Indication: ARTHRITIS
     Dosage: Taken with PREVACID
  3. PREVACID [Concomitant]
     Indication: ABDOMINAL DISCOMFORT
     Dosage: Taken w/ unknown arthritis medication
  4. DIOVAN HCT [Concomitant]
     Indication: HYPERTENSION
     Dosage: 320/25 daily

REACTIONS (5)
  - Osteoarthritis [Recovered/Resolved]
  - Hypertension [Unknown]
  - Injection site bruising [Unknown]
  - Injection site pain [Unknown]
  - Injection site pain [Unknown]
